FAERS Safety Report 8461213-5 (Version None)
Quarter: 2012Q2

REPORT INFORMATION
  Report Type: 
  Country: None (occurrence: None)
  Receive Date: 20120618
  Receipt Date: 20120618
  Transmission Date: 20120825
  Serious: Yes (Other)
  Sender: FDA-Public Use
  Company Number: None

PATIENT
  Age: 50 Year
  Sex: Female

DRUGS (1)
  1. BUSPAR [Suspect]
     Indication: ANXIETY
     Dosage: 5MG TWICE DAILY PO
     Route: 048
     Dates: start: 20120405, end: 20120415

REACTIONS (3)
  - GAIT DISTURBANCE [None]
  - DYSKINESIA [None]
  - TREMOR [None]
